FAERS Safety Report 5763016-9 (Version None)
Quarter: 2008Q2

REPORT INFORMATION
  Report Type: 
  Country: None (occurrence: None)
  Receive Date: 20080609
  Receipt Date: 20080526
  Transmission Date: 20081010
  Serious: Yes (Hospitalization)
  Sender: FDA-Public Use
  Company Number: TW-ELI_LILLY_AND_COMPANY-TW200805005204

PATIENT
  Age: 38 Year
  Sex: Male
  Weight: 55 kg

DRUGS (5)
  1. HUMALOG [Suspect]
     Indication: DIABETES MELLITUS
     Dosage: 10 U, 3/D
     Route: 058
     Dates: start: 20080401, end: 20080513
  2. HUMALOG [Suspect]
     Dosage: 14 IU, EACH EVENING
     Route: 058
     Dates: start: 20080401, end: 20080513
  3. HUMALOG [Suspect]
     Dosage: 14 IU, OTHER
     Route: 058
     Dates: start: 20080401, end: 20080513
  4. LANTUS [Concomitant]
     Dosage: 14 U, DAILY (1/D)
     Route: 065
  5. GLUCOPHAGE [Concomitant]
     Dosage: 500 MG, 3/D
     Route: 065

REACTIONS (2)
  - DIABETIC KETOACIDOSIS [None]
  - HYPERGLYCAEMIA [None]
